FAERS Safety Report 5639316-X (Version None)
Quarter: 2008Q1

REPORT INFORMATION
  Report Type: 
  Country: None (occurrence: None)
  Receive Date: 20080226
  Receipt Date: 20080214
  Transmission Date: 20080703
  Serious: Yes (Other)
  Sender: FDA-Public Use
  Company Number: US-SANOFI-SYNTHELABO-A03200800639

PATIENT
  Sex: Male

DRUGS (2)
  1. AMBIEN [Suspect]
     Indication: INSOMNIA
     Dosage: SINGLE DOSE OF ZOLPIDEM; WITNESSES CLAIMED HE TOOK 4 TABLETS
     Route: 048
  2. AMBIEN [Suspect]
     Indication: MALAISE
     Dosage: SINGLE DOSE OF ZOLPIDEM; WITNESSES CLAIMED HE TOOK 4 TABLETS
     Route: 048

REACTIONS (3)
  - IMPAIRED DRIVING ABILITY [None]
  - INTENTIONAL OVERDOSE [None]
  - ROAD TRAFFIC ACCIDENT [None]
